FAERS Safety Report 19003826 (Version 6)
Quarter: 2022Q1

REPORT INFORMATION
  Report Type: Spontaneous
  Country: US (occurrence: US)
  Receive Date: 20210312
  Receipt Date: 20220322
  Transmission Date: 20220423
  Serious: Yes (Other)
  Sender: FDA-Public Use
  Company Number: US-PFIZER INC-2021200440

PATIENT
  Age: 52 Year
  Sex: Female

DRUGS (1)
  1. XELJANZ XR [Suspect]
     Active Substance: TOFACITINIB CITRATE
     Indication: Rheumatoid arthritis
     Dosage: 11 MG, 1X/DAY
     Route: 048
     Dates: start: 202012

REACTIONS (7)
  - Intestinal obstruction [Unknown]
  - Feeling abnormal [Unknown]
  - COVID-19 [Unknown]
  - Arthralgia [Unknown]
  - Sensitivity to weather change [Unknown]
  - Memory impairment [Unknown]
  - Product dose omission issue [Unknown]
